FAERS Safety Report 9257519 (Version 2)
Quarter: 2014Q1

REPORT INFORMATION
  Report Type: Spontaneous
  Country: US (occurrence: None)
  Receive Date: 20121212
  Receipt Date: 20130314
  Transmission Date: 20141002
  Serious: No
  Sender: FDA-Public Use
  Company Number: 1209USA006366

PATIENT
  Age: 67 Year
  Sex: Male

DRUGS (3)
  1. VICTRELIS [Suspect]
     Indication: HEPATITIS C
     Dosage: UNK
     Dates: start: 20120810
  2. RIBAVIRIN [Suspect]
     Indication: HEPATITIS C
     Dosage: UNK
     Dates: start: 20120727
  3. PEGASYS (PEGINTERFERON ALFA-2A) [Suspect]
     Indication: HEPATITIS C
     Dosage: UNK
     Dates: start: 20120727

REACTIONS (10)
  - White blood cell count decreased [None]
  - Vision blurred [None]
  - Nausea [None]
  - Abdominal discomfort [None]
  - Decreased appetite [None]
  - Dysgeusia [None]
  - Fatigue [None]
  - Leukopenia [None]
  - Memory impairment [None]
  - Pollakiuria [None]
